FAERS Safety Report 5675149-6 (Version None)
Quarter: 2008Q1

REPORT INFORMATION
  Report Type: 
  Country: None (occurrence: None)
  Receive Date: 20080320
  Receipt Date: 20080310
  Transmission Date: 20080703
  Serious: Yes (Hospitalization)
  Sender: FDA-Public Use
  Company Number: US-JNJFOC-20080106813

PATIENT
  Sex: Male
  Weight: 98.88 kg

DRUGS (11)
  1. DURAGESIC-100 [Suspect]
     Route: 062
  2. DURAGESIC-100 [Suspect]
     Route: 062
  3. DURAGESIC-100 [Suspect]
     Route: 062
  4. DURAGESIC-100 [Suspect]
     Dosage: 100 AND 25 UG/HR
     Route: 062
  5. DURAGESIC-100 [Suspect]
     Indication: PAIN
     Dosage: 1X 75 UG/HR PATCH PLUS 1X 12.5 UG/HR PATCH
     Route: 062
  6. LISINOPRIL [Concomitant]
     Indication: BLOOD PRESSURE
     Route: 048
  7. AMLODIPINE BESYLATE [Concomitant]
     Indication: BLOOD PRESSURE
     Dosage: HALF A 5.0 MG TABLET
     Route: 048
  8. CLONIDINE [Concomitant]
     Indication: BLOOD PRESSURE
     Route: 048
  9. NORCO [Concomitant]
     Indication: PAIN
     Dosage: AS NEEDED
     Route: 048
  10. SOMA [Concomitant]
     Indication: PAIN
     Dosage: AS NEEDED
     Route: 048
  11. AMLODIPINE [Concomitant]
     Indication: BLOOD PRESSURE
     Route: 048

REACTIONS (3)
  - ARTHRALGIA [None]
  - INAPPROPRIATE SCHEDULE OF DRUG ADMINISTRATION [None]
  - WITHDRAWAL SYNDROME [None]
